FAERS Safety Report 6955967-4 (Version None)
Quarter: 2010Q3

REPORT INFORMATION
  Report Type: 
  Country: None (occurrence: None)
  Receive Date: 20100826
  Receipt Date: 20100826
  Transmission Date: 20110219
  Serious: Yes (Hospitalization)
  Sender: FDA-Public Use
  Company Number: None

PATIENT
  Sex: Male

DRUGS (1)
  1. ZEMPLAR [Suspect]
     Indication: PROSTATE CANCER
     Dosage: 1 MG QD PO
     Route: 048
     Dates: start: 20100602, end: 20100713

REACTIONS (1)
  - STAPHYLOCOCCAL INFECTION [None]
